FAERS Safety Report 11660315 (Version 2)
Quarter: 2015Q4

REPORT INFORMATION
  Report Type: Spontaneous
  Country: US (occurrence: None)
  Receive Date: 20151026
  Receipt Date: 20151123
  Transmission Date: 20160304
  Serious: Yes (Other)
  Sender: FDA-Public Use
  Company Number: US-MDT-ADR-2015-02021

PATIENT
  Age: 35 Year
  Sex: Male

DRUGS (1)
  1. LIORESAL [Suspect]
     Active Substance: BACLOFEN
     Indication: MUSCLE SPASTICITY

REACTIONS (12)
  - Anxiety [None]
  - Urinary retention [None]
  - Depression [None]
  - Hallucination [None]
  - Headache [None]
  - Abdominal pain upper [None]
  - Muscle spasms [None]
  - Asthenia [None]
  - Constipation [None]
  - Dysuria [None]
  - Pruritus [None]
  - Pain in extremity [None]
